FAERS Safety Report 17063236 (Version 1)
Quarter: 2019Q4

REPORT INFORMATION
  Report Type: Spontaneous
  Country: CA (occurrence: CA)
  Receive Date: 20191122
  Receipt Date: 20191122
  Transmission Date: 20200122
  Serious: Yes (Other)
  Sender: FDA-Public Use
  Company Number: CA-ROCHE-2470340

PATIENT
  Age: 57 Year
  Sex: Female
  Weight: 79 kg

DRUGS (17)
  1. ACETAMINOPHEN. [Concomitant]
     Active Substance: ACETAMINOPHEN
     Indication: PREMEDICATION
     Route: 048
  2. ASPIRIN [ACETYLSALICYLIC ACID] [Concomitant]
     Active Substance: ASPIRIN
  3. METHOTREXATE. [Concomitant]
     Active Substance: METHOTREXATE
  4. METHYLPREDNISOLONE. [Concomitant]
     Active Substance: METHYLPREDNISOLONE
     Indication: PREMEDICATION
     Route: 042
  5. NAPROXEN. [Concomitant]
     Active Substance: NAPROXEN
  6. HYDROMORPH CONTIN [Suspect]
     Active Substance: HYDROMORPHONE
     Indication: PRODUCT USED FOR UNKNOWN INDICATION
     Route: 065
  7. DIPHENHYDRAMINE HYDROCHLORIDE. [Concomitant]
     Active Substance: DIPHENHYDRAMINE HYDROCHLORIDE
     Indication: PREMEDICATION
     Route: 048
  8. NEXIUM [Concomitant]
     Active Substance: ESOMEPRAZOLE MAGNESIUM
  9. RITUXAN [Suspect]
     Active Substance: RITUXIMAB
     Indication: RHEUMATOID ARTHRITIS
     Route: 042
  10. ALTACE [Concomitant]
     Active Substance: RAMIPRIL
  11. FOLIC ACID. [Concomitant]
     Active Substance: FOLIC ACID
  12. PLAQUENIL [Concomitant]
     Active Substance: HYDROXYCHLOROQUINE SULFATE
  13. METOPROLOL. [Concomitant]
     Active Substance: METOPROLOL
  14. ROSUVASTATIN CALCIUM. [Concomitant]
     Active Substance: ROSUVASTATIN CALCIUM
  15. MORPHINE SULFATE. [Suspect]
     Active Substance: MORPHINE SULFATE
     Indication: PRODUCT USED FOR UNKNOWN INDICATION
     Route: 065
  16. CITALOPRAM HYDROBROMIDE. [Concomitant]
     Active Substance: CITALOPRAM HYDROBROMIDE
  17. PRAMIPEXOLE. [Concomitant]
     Active Substance: PRAMIPEXOLE

REACTIONS (15)
  - Infusion related reaction [Not Recovered/Not Resolved]
  - Pain [Not Recovered/Not Resolved]
  - Arthritis [Not Recovered/Not Resolved]
  - Drug ineffective [Unknown]
  - Arthralgia [Not Recovered/Not Resolved]
  - Fall [Not Recovered/Not Resolved]
  - Joint swelling [Not Recovered/Not Resolved]
  - Nasal congestion [Not Recovered/Not Resolved]
  - Therapeutic product effect decreased [Not Recovered/Not Resolved]
  - Fatigue [Not Recovered/Not Resolved]
  - Foot fracture [Not Recovered/Not Resolved]
  - Sinus pain [Not Recovered/Not Resolved]
  - Throat irritation [Not Recovered/Not Resolved]
  - Skin laceration [Not Recovered/Not Resolved]
  - Weight increased [Not Recovered/Not Resolved]
